FAERS Safety Report 19441694 (Version 4)
Quarter: 2021Q3

REPORT INFORMATION
  Report Type: Spontaneous
  Country: GR (occurrence: GR)
  Receive Date: 20210621
  Receipt Date: 20210719
  Transmission Date: 20211014
  Serious: Yes (Other)
  Sender: FDA-Public Use
  Company Number: GR-ROCHE-2854161

PATIENT
  Age: 60 Year
  Sex: Female

DRUGS (11)
  1. XOLAIR [Suspect]
     Active Substance: OMALIZUMAB
     Indication: PRODUCT USED FOR UNKNOWN INDICATION
     Dosage: 150 X 2
     Route: 065
     Dates: start: 20210525
  2. BINOSTO [Concomitant]
     Active Substance: ALENDRONATE SODIUM
     Indication: PRODUCT USED FOR UNKNOWN INDICATION
     Dosage: 70 UNK
     Route: 065
  3. RUPAFIN [Concomitant]
     Active Substance: RUPATADINE FUMARATE
     Indication: PRODUCT USED FOR UNKNOWN INDICATION
     Dosage: UNK
     Route: 065
  4. PREVNAR 13 [Concomitant]
     Active Substance: PNEUMOCOCCAL 13-VALENT CONJUGATE VACCINE
     Indication: PRODUCT USED FOR UNKNOWN INDICATION
     Dosage: UNK
     Route: 065
     Dates: start: 20200412
  5. PROLIA [Concomitant]
     Active Substance: DENOSUMAB
     Indication: PRODUCT USED FOR UNKNOWN INDICATION
     Dosage: UNK
     Route: 065
     Dates: end: 202003
  6. MEDROL [Concomitant]
     Active Substance: METHYLPREDNISOLONE
     Indication: RASH
     Dosage: 16 MG
     Route: 065
     Dates: start: 20210603
  7. BILAZ [Concomitant]
     Indication: PRODUCT USED FOR UNKNOWN INDICATION
     Dosage: UNK
     Route: 065
  8. XOZAL [Concomitant]
     Active Substance: LEVOCETIRIZINE
     Indication: PRODUCT USED FOR UNKNOWN INDICATION
     Dosage: UNK
     Route: 065
  9. MEDROL [Concomitant]
     Active Substance: METHYLPREDNISOLONE
     Indication: BURNING SENSATION
     Dosage: UNK
     Route: 065
     Dates: start: 20210606
  10. MEDROL [Concomitant]
     Active Substance: METHYLPREDNISOLONE
     Indication: PRURITUS
  11. ATARAX [Concomitant]
     Active Substance: HYDROXYZINE HYDROCHLORIDE
     Indication: PRODUCT USED FOR UNKNOWN INDICATION
     Dosage: UNK
     Route: 065

REACTIONS (7)
  - Angioedema [Unknown]
  - Urticaria [Recovered/Resolved]
  - Rash [Recovered/Resolved]
  - Burning sensation [Recovered/Resolved]
  - Skin lesion [Recovered/Resolved]
  - Skin hyperpigmentation [Recovered/Resolved]
  - Urticarial vasculitis [Unknown]

NARRATIVE: CASE EVENT DATE: 20210529
